FAERS Safety Report 4981534-8 (Version None)
Quarter: 2006Q2

REPORT INFORMATION
  Report Type: 
  Country: None (occurrence: None)
  Receive Date: 20060419
  Receipt Date: 20060331
  Transmission Date: 20061013
  Serious: Yes (Hospitalization, Other)
  Sender: FDA-Public Use
  Company Number: US200604001739

PATIENT
  Age: 1 Day

DRUGS (2)
  1. HUMULIN R [Suspect]
     Dosage: TRANSPLACENTAL
     Route: 064
     Dates: start: 19890101
  2. HUMULIN N [Suspect]
     Dosage: TRANSPLACENTAL
     Route: 064
     Dates: start: 19960101

REACTIONS (5)
  - BODY TEMPERATURE DECREASED [None]
  - CYANOSIS NEONATAL [None]
  - DRUG EXPOSURE DURING PREGNANCY [None]
  - PHARMACEUTICAL PRODUCT COMPLAINT [None]
  - PREMATURE BABY [None]
